FAERS Safety Report 5047390-7 (Version None)
Quarter: 2006Q3

REPORT INFORMATION
  Report Type: 
  Country: None (occurrence: None)
  Receive Date: 20060703
  Receipt Date: 20060615
  Transmission Date: 20061208
  Serious: Yes (Hospitalization)
  Sender: FDA-Public Use
  Company Number: US-2006-015677

PATIENT
  Age: 23 Year
  Sex: Female

DRUGS (1)
  1. BETASERON [Suspect]
     Indication: RELAPSING-REMITTING MULTIPLE SCLEROSIS
     Dosage: 6 MIU, EVERY 2D, SUBCUTANEOUS
     Route: 058
     Dates: start: 20060511

REACTIONS (4)
  - CONTUSION [None]
  - LOSS OF CONTROL OF LEGS [None]
  - ROAD TRAFFIC ACCIDENT [None]
  - VOMITING [None]
